FAERS Safety Report 23159914 (Version 1)
Quarter: 2023Q4

REPORT INFORMATION
  Report Type: Spontaneous
  Country: CN (occurrence: CN)
  Receive Date: 20231108
  Receipt Date: 20231108
  Transmission Date: 20240109
  Serious: Yes (Other)
  Sender: FDA-Public Use
  Company Number: CN-Eisai-EC-2023-152109

PATIENT
  Age: 84 Year
  Sex: Male
  Weight: 38 kg

DRUGS (1)
  1. LENVIMA [Suspect]
     Active Substance: LENVATINIB
     Indication: Neoplasm malignant
     Route: 048
     Dates: start: 20230821, end: 20230904

REACTIONS (10)
  - Gastric perforation [Unknown]
  - Haematochezia [Unknown]
  - Haematemesis [Unknown]
  - Chills [Unknown]
  - Pyrexia [Unknown]
  - Anaemia [Unknown]
  - Platelet count decreased [Unknown]
  - White blood cell count decreased [Unknown]
  - Coagulation test abnormal [Unknown]
  - Gastrointestinal haemorrhage [Unknown]

NARRATIVE: CASE EVENT DATE: 20230826
